FAERS Safety Report 6619678-7 (Version None)
Quarter: 2010Q1

REPORT INFORMATION
  Report Type: 
  Country: None (occurrence: None)
  Receive Date: 20100309
  Receipt Date: 20100224
  Transmission Date: 20100710
  Serious: Yes (Hospitalization)
  Sender: FDA-Public Use
  Company Number: HU-ELI_LILLY_AND_COMPANY-HU201002006769

PATIENT
  Age: 46 Year
  Sex: Male

DRUGS (7)
  1. ZYPADHERA [Suspect]
     Indication: SCHIZOPHRENIA
     Dosage: 210 MG, UNKNOWN
     Route: 030
  2. ZYPADHERA [Suspect]
     Dosage: 405 MG, UNKNOWN
     Route: 030
     Dates: start: 20100215
  3. ZYPREXA [Concomitant]
     Dosage: 20 MG, EACH EVENING
     Route: 048
  4. ZYPREXA [Concomitant]
     Dosage: 5 MG, EACH EVENING
     Route: 048
  5. ZYPREXA [Concomitant]
     Dosage: UNK, UNKNOWN
  6. RIVOTRIL [Concomitant]
     Dosage: 0.5 MG, EACH EVENING
  7. CONVULEX [Concomitant]
     Dosage: 300 MG, 2/D

REACTIONS (3)
  - INJECTION SITE HAEMATOMA [None]
  - INJECTION SITE INFLAMMATION [None]
  - PYREXIA [None]
